FAERS Safety Report 9612933 (Version 3)
Quarter: 2013Q4

REPORT INFORMATION
  Report Type: Spontaneous
  Country: US (occurrence: US)
  Receive Date: 20131010
  Receipt Date: 20131011
  Transmission Date: 20140711
  Serious: Yes (Death)
  Sender: FDA-Public Use
  Company Number: US-ROCHE-1275359

PATIENT
  Sex: Female

DRUGS (1)
  1. XELODA [Suspect]
     Indication: COLON CANCER
     Dosage: TAKE FOR 14 DAYS EVERY 21 DAYS
     Route: 048

REACTIONS (3)
  - Colon cancer [Fatal]
  - Dysphagia [Unknown]
  - Speech disorder [Unknown]
